FAERS Safety Report 16824804 (Version 1)
Quarter: 2019Q3

REPORT INFORMATION
  Report Type: Spontaneous
  Country: BR (occurrence: BR)
  Receive Date: 20190918
  Receipt Date: 20190918
  Transmission Date: 20191005
  Serious: Yes (Other)
  Sender: FDA-Public Use
  Company Number: BR-009507513-1909BRA005776

PATIENT
  Sex: Female
  Weight: 72.8 kg

DRUGS (4)
  1. SIMVASTATIN. [Suspect]
     Active Substance: SIMVASTATIN
     Indication: CARDIAC DISORDER
     Dosage: 40 MG, ONCE A DAY
     Route: 048
  2. LOSARTAN POTASSIUM. [Suspect]
     Active Substance: LOSARTAN POTASSIUM
     Indication: HYPERTENSION
     Dosage: 50 MG, TWICE A DAY
     Route: 048
  3. CLEXANE (ENOXAPARIN SODIUM) [Concomitant]
     Active Substance: ENOXAPARIN SODIUM
     Dosage: 60 MG, EACH 12 HOURS
  4. METOPROLOL TARTRATE. [Concomitant]
     Active Substance: METOPROLOL TARTRATE
     Indication: HYPERTENSION
     Dosage: 40 MG, ONCE DAILY

REACTIONS (4)
  - Metastases to central nervous system [Not Recovered/Not Resolved]
  - Lung cancer metastatic [Not Recovered/Not Resolved]
  - Vascular graft [Unknown]
  - Brain neoplasm [Unknown]
